FAERS Safety Report 22284186 (Version 1)
Quarter: 2023Q2

REPORT INFORMATION
  Report Type: Spontaneous
  Country: US (occurrence: US)
  Receive Date: 20230504
  Receipt Date: 20230504
  Transmission Date: 20230722
  Serious: Yes (Hospitalization, Other)
  Sender: FDA-Public Use
  Company Number: US-PFIZER INC-202200758245

PATIENT
  Age: 70 Year
  Sex: Male
  Weight: 73.03 kg

DRUGS (2)
  1. VYNDAMAX [Suspect]
     Active Substance: TAFAMIDIS
     Indication: Cardiac amyloidosis
     Dosage: EVERY DAY ONE TIME A DAY BY MOUTH
     Route: 048
     Dates: start: 2022
  2. VYNDAMAX [Suspect]
     Active Substance: TAFAMIDIS
     Indication: Cardiac disorder

REACTIONS (2)
  - Gait inability [Unknown]
  - Intervertebral disc protrusion [Recovering/Resolving]
